FAERS Safety Report 6960606-2 (Version None)
Quarter: 2010Q3

REPORT INFORMATION
  Report Type: 
  Country: None (occurrence: None)
  Receive Date: 20100901
  Receipt Date: 20100819
  Transmission Date: 20110219
  Serious: Yes (Other)
  Sender: FDA-Public Use
  Company Number: FR-ELI_LILLY_AND_COMPANY-FR201005007538

PATIENT
  Age: 68 Year
  Sex: Female
  Weight: 63 kg

DRUGS (4)
  1. FORTEO [Suspect]
     Indication: OSTEOPOROSIS
     Dosage: 20 UG, DAILY (1/D)
     Route: 058
     Dates: start: 20100312
  2. SKENAN [Concomitant]
     Indication: PAIN
     Dosage: 120 MG, 2/D
     Route: 048
  3. LANSOPRAZOLE [Concomitant]
     Indication: GASTROOESOPHAGEAL REFLUX DISEASE
     Dosage: 15 MG, DAILY (1/D)
     Route: 048
  4. EFFERALGAN                         /00020001/ [Concomitant]
     Indication: PAIN
     Dosage: 1 TO 3G, DAILY (1/D)
     Route: 048

REACTIONS (1)
  - FEMORAL NECK FRACTURE [None]
